FAERS Safety Report 9779288 (Version 1)
Quarter: 2013Q4

REPORT INFORMATION
  Report Type: Spontaneous
  Country: US (occurrence: US)
  Receive Date: 20131223
  Receipt Date: 20131223
  Transmission Date: 20140711
  Serious: Yes (Hospitalization)
  Sender: FDA-Public Use
  Company Number: US-AMGEN-USASP2013088693

PATIENT
  Age: 53 Year
  Sex: Female

DRUGS (2)
  1. PROLIA [Suspect]
     Indication: PRODUCT USED FOR UNKNOWN INDICATION
     Route: 065
  2. FEMARA [Concomitant]
     Route: 065

REACTIONS (5)
  - Erysipelas [Unknown]
  - Gait disturbance [Unknown]
  - Herpes zoster [Unknown]
  - Arthralgia [Unknown]
  - Musculoskeletal pain [Unknown]
